FAERS Safety Report 5918514-1 (Version None)
Quarter: 2008Q4

REPORT INFORMATION
  Report Type: 
  Country: None (occurrence: None)
  Receive Date: 20081014
  Receipt Date: 20081014
  Transmission Date: 20090506
  Serious: Yes (Other)
  Sender: FDA-Public Use
  Company Number: None

PATIENT
  Age: 62 Year
  Sex: Female
  Weight: 63.05 kg

DRUGS (2)
  1. NEXIUM [Suspect]
     Indication: ASTHMA
     Dosage: 40MG BID PO
     Route: 048
     Dates: start: 20081006, end: 20081013
  2. NEXIUM [Suspect]
     Indication: GASTROOESOPHAGEAL REFLUX DISEASE
     Dosage: 40MG BID PO
     Route: 048
     Dates: start: 20081006, end: 20081013

REACTIONS (5)
  - CONDITION AGGRAVATED [None]
  - DYSPNOEA [None]
  - ECONOMIC PROBLEM [None]
  - PRODUCTIVE COUGH [None]
  - THERAPEUTIC RESPONSE UNEXPECTED WITH DRUG SUBSTITUTION [None]
